FAERS Safety Report 23271739 (Version 2)
Quarter: 2024Q1

REPORT INFORMATION
  Report Type: Spontaneous
  Country: CA (occurrence: CA)
  Receive Date: 20231207
  Receipt Date: 20240111
  Transmission Date: 20240410
  Serious: Yes (Death)
  Sender: FDA-Public Use
  Company Number: CA-PFIZER INC-PV202200134032

PATIENT
  Age: 60 Year
  Sex: Female

DRUGS (2)
  1. IBRANCE [Suspect]
     Active Substance: PALBOCICLIB
     Indication: Metastatic neoplasm
     Dosage: 75 MG
     Dates: start: 20201001
  2. LETROZOLE [Concomitant]
     Active Substance: LETROZOLE

REACTIONS (1)
  - Neoplasm progression [Fatal]
